FAERS Safety Report 18378433 (Version 4)
Quarter: 2020Q4

REPORT INFORMATION
  Report Type: Spontaneous
  Country: AU (occurrence: AU)
  Receive Date: 20201013
  Receipt Date: 20201211
  Transmission Date: 20210114
  Serious: Yes (Other)
  Sender: FDA-Public Use
  Company Number: AU-ASTRAZENECA-2020SF11476

PATIENT
  Age: 62 Year
  Sex: Female

DRUGS (4)
  1. PULMICORT TURBUHALER [Suspect]
     Active Substance: BUDESONIDE
     Dosage: 400 UG, 2 PUFFS TWICE DAILY
     Route: 055
     Dates: start: 20200820, end: 20201124
  2. RALOVERA [Concomitant]
     Active Substance: MEDROXYPROGESTERONE ACETATE
  3. ESTRADOT 50 [Concomitant]
     Dosage: 1PATCH EVERY 2.5 DAYS
  4. PULMICORT TURBUHALER [Suspect]
     Active Substance: BUDESONIDE
     Dosage: 400 UG, 2 PUFFS TWICE DAILY
     Route: 055
     Dates: start: 2012

REACTIONS (3)
  - Device malfunction [Unknown]
  - Bronchitis [Recovered/Resolved]
  - Drug dose omission by device [Unknown]

NARRATIVE: CASE EVENT DATE: 2019
